FAERS Safety Report 25268191 (Version 1)
Quarter: 2025Q2

REPORT INFORMATION
  Report Type: Spontaneous
  Country: US (occurrence: None)
  Receive Date: 20250503
  Receipt Date: 20250503
  Transmission Date: 20250717
  Serious: Yes (Disabling)
  Sender: FDA-CTU
  Company Number: None

PATIENT
  Age: 38 Year
  Sex: Female
  Weight: 103.05 kg

DRUGS (4)
  1. CIPROFLOXACIN [Suspect]
     Active Substance: CIPROFLOXACIN
     Indication: Urinary tract infection
     Dosage: EVERY 12 HOURS ORAL
     Route: 048
     Dates: start: 20230531, end: 20230604
  2. Tizianidine [Concomitant]
  3. VITAMIN D3 [Concomitant]
     Active Substance: CHOLECALCIFEROL
  4. WALKER [Concomitant]

REACTIONS (2)
  - Arthropathy [None]
  - Weight bearing difficulty [None]

NARRATIVE: CASE EVENT DATE: 20230531
